FAERS Safety Report 17526217 (Version 2)
Quarter: 2021Q1

REPORT INFORMATION
  Report Type: Spontaneous
  Country: CN (occurrence: CN)
  Receive Date: 20200311
  Receipt Date: 20210204
  Transmission Date: 20210419
  Serious: Yes (Death, Other)
  Sender: FDA-Public Use
  Company Number: CN-ROCHE-2564867

PATIENT
  Age: 39 Year
  Sex: Male

DRUGS (54)
  1. RITUXIMAB. [Suspect]
     Active Substance: RITUXIMAB
     Dosage: R?BEAM?R REGIMEN
     Route: 065
     Dates: start: 20130705
  2. RITUXIMAB. [Suspect]
     Active Substance: RITUXIMAB
     Dosage: PD?1+BR REGIMEN, DAY1
     Route: 065
     Dates: start: 20181020
  3. DOXORUBICIN [Suspect]
     Active Substance: DOXORUBICIN
     Dosage: R?DA?EPOCH REGIMEN, DAY1
     Route: 065
     Dates: start: 20180627
  4. CYTARABINE. [Suspect]
     Active Substance: CYTARABINE
     Dosage: R?ESHAP REGIMEN
     Route: 065
     Dates: start: 20130309
  5. CISPLATIN. [Suspect]
     Active Substance: CISPLATIN
     Dosage: R?ESHAP REGIMEN
     Route: 065
     Dates: start: 20130330
  6. VINDESINE [Suspect]
     Active Substance: VINDESINE
     Indication: B-CELL LYMPHOMA
     Dosage: R?DA?EPOCH REGIMEN, DAY1?4
     Route: 065
     Dates: start: 20180627
  7. BENDAMUSTINE [Suspect]
     Active Substance: BENDAMUSTINE
     Indication: DIFFUSE LARGE B-CELL LYMPHOMA
     Dosage: BR REGIMEN, DAY1?4
     Route: 065
     Dates: start: 20181020
  8. RITUXIMAB. [Suspect]
     Active Substance: RITUXIMAB
     Dosage: R?ESHAP REGIMEN
     Route: 065
     Dates: start: 20130215
  9. DOXORUBICIN [Suspect]
     Active Substance: DOXORUBICIN
     Indication: B-CELL LYMPHOMA
     Dosage: R?CHOP REGIMEN
     Route: 065
     Dates: start: 20121130
  10. VINCRISTINE [Suspect]
     Active Substance: VINCRISTINE
     Dosage: R?COEP?R REGIMEN
     Route: 065
     Dates: start: 20130518
  11. PREDNISONE. [Suspect]
     Active Substance: PREDNISONE
     Indication: B-CELL LYMPHOMA
     Dosage: R?CHOP REGIMEN
     Route: 065
     Dates: start: 20121130
  12. CISPLATIN. [Suspect]
     Active Substance: CISPLATIN
     Indication: B-CELL LYMPHOMA
     Dosage: R?ESHAP REGIMEN
     Route: 065
     Dates: start: 20130120
  13. RITUXIMAB. [Suspect]
     Active Substance: RITUXIMAB
     Dosage: R?COEP?R REGIMEN
     Route: 065
     Dates: start: 20130518
  14. RITUXIMAB. [Suspect]
     Active Substance: RITUXIMAB
     Dosage: R?DA?EPOCH REGIMEN, DAY0
     Route: 065
     Dates: start: 20180627
  15. VINCRISTINE [Suspect]
     Active Substance: VINCRISTINE
     Indication: DIFFUSE LARGE B-CELL LYMPHOMA
     Dosage: R?CHOP REGIMEN
     Route: 065
     Dates: start: 20121225
  16. METHYLPREDNISOLONE. [Suspect]
     Active Substance: METHYLPREDNISOLONE
     Dosage: R?ESHAP REGIMEN
     Route: 065
     Dates: start: 20130309
  17. RITUXIMAB. [Suspect]
     Active Substance: RITUXIMAB
     Indication: DIFFUSE LARGE B-CELL LYMPHOMA
     Dosage: R?CHOP REGIMEN
     Route: 065
     Dates: start: 20121225
  18. RITUXIMAB. [Suspect]
     Active Substance: RITUXIMAB
     Dosage: R?ESHAP REGIMEN
     Route: 065
     Dates: start: 20130330
  19. CYCLOPHOSPHAMIDE. [Suspect]
     Active Substance: CYCLOPHOSPHAMIDE
     Dosage: R?COEP?R REGIMEN
     Route: 065
     Dates: start: 20130518
  20. ETOPOSIDE. [Suspect]
     Active Substance: ETOPOSIDE
     Dosage: R?ESHAP REGIMEN
     Route: 065
     Dates: start: 20130330
  21. ETOPOSIDE. [Suspect]
     Active Substance: ETOPOSIDE
     Dosage: R?COEP?R REGIMEN
     Route: 065
     Dates: start: 20130518
  22. METHYLPREDNISOLONE. [Suspect]
     Active Substance: METHYLPREDNISOLONE
     Dosage: R?ESHAP REGIMEN
     Route: 065
     Dates: start: 20130330
  23. CISPLATIN. [Suspect]
     Active Substance: CISPLATIN
     Dosage: R?ESHAP REGIMEN
     Route: 065
     Dates: start: 20130309
  24. CARMUSTINE. [Suspect]
     Active Substance: CARMUSTINE
     Indication: DIFFUSE LARGE B-CELL LYMPHOMA
  25. VINDESINE [Suspect]
     Active Substance: VINDESINE
     Indication: DIFFUSE LARGE B-CELL LYMPHOMA
  26. BENDAMUSTINE [Suspect]
     Active Substance: BENDAMUSTINE
     Indication: B-CELL LYMPHOMA
     Dosage: BR REGIMEN, DAY1?2
     Route: 065
     Dates: start: 20180928
  27. RITUXIMAB. [Suspect]
     Active Substance: RITUXIMAB
     Route: 065
     Dates: start: 20131005, end: 20151005
  28. CYCLOPHOSPHAMIDE. [Suspect]
     Active Substance: CYCLOPHOSPHAMIDE
     Indication: DIFFUSE LARGE B-CELL LYMPHOMA
     Dosage: R?CHOP REGIMEN
     Route: 065
     Dates: start: 20121225
  29. CYCLOPHOSPHAMIDE. [Suspect]
     Active Substance: CYCLOPHOSPHAMIDE
     Dosage: R?DA?EPOCH REGIMEN, DAY5
     Route: 065
     Dates: start: 20180627
  30. ETOPOSIDE. [Suspect]
     Active Substance: ETOPOSIDE
     Indication: DIFFUSE LARGE B-CELL LYMPHOMA
     Dosage: R?ESHAP REGIMEN
     Route: 065
     Dates: start: 20130215
  31. ETOPOSIDE. [Suspect]
     Active Substance: ETOPOSIDE
     Dosage: R?DA?EPOCH REGIMEN, DAY?1?4
     Route: 065
     Dates: start: 20180627
  32. CYTARABINE. [Suspect]
     Active Substance: CYTARABINE
     Indication: DIFFUSE LARGE B-CELL LYMPHOMA
     Dosage: R?ESHAP REGIMEN
     Route: 065
     Dates: start: 20130215
  33. CYTARABINE. [Suspect]
     Active Substance: CYTARABINE
     Dosage: R?ESHAP REGIMEN
     Route: 065
     Dates: start: 20130330
  34. CISPLATIN. [Suspect]
     Active Substance: CISPLATIN
     Indication: DIFFUSE LARGE B-CELL LYMPHOMA
     Dosage: R?ESHAP REGIMEN
     Route: 065
     Dates: start: 20130215
  35. ETOPOSIDE. [Suspect]
     Active Substance: ETOPOSIDE
     Indication: B-CELL LYMPHOMA
     Dosage: R?ESHAP REGIMEN
     Route: 065
     Dates: start: 20130120
  36. ETOPOSIDE. [Suspect]
     Active Substance: ETOPOSIDE
     Dosage: R?BEAM?R REGIMEN
     Route: 065
     Dates: start: 20130705
  37. METHYLPREDNISOLONE. [Suspect]
     Active Substance: METHYLPREDNISOLONE
     Indication: B-CELL LYMPHOMA
     Dosage: R?ESHAP REGIMEN
     Route: 065
     Dates: start: 20130120
  38. MELPHALAN. [Suspect]
     Active Substance: MELPHALAN
     Indication: B-CELL LYMPHOMA
     Dosage: R?BEAM?R REGIMEN
     Route: 065
     Dates: start: 20130705
  39. MELPHALAN. [Suspect]
     Active Substance: MELPHALAN
     Indication: DIFFUSE LARGE B-CELL LYMPHOMA
  40. RITUXIMAB. [Suspect]
     Active Substance: RITUXIMAB
     Dosage: R?ESHAP REGIMEN
     Route: 065
     Dates: start: 20130120
  41. RITUXIMAB. [Suspect]
     Active Substance: RITUXIMAB
     Dosage: BR REGIMEN, DAY1
     Route: 065
     Dates: start: 20180928
  42. DOXORUBICIN [Suspect]
     Active Substance: DOXORUBICIN
     Indication: DIFFUSE LARGE B-CELL LYMPHOMA
     Dosage: R?CHOP REGIMEN
     Route: 065
     Dates: start: 20121225
  43. PREDNISONE. [Suspect]
     Active Substance: PREDNISONE
     Dosage: R?COEP?R REGIMEN
     Route: 065
     Dates: start: 20130518
  44. METHYLPREDNISOLONE. [Suspect]
     Active Substance: METHYLPREDNISOLONE
     Indication: DIFFUSE LARGE B-CELL LYMPHOMA
     Dosage: R?ESHAP REGIMEN
     Route: 065
     Dates: start: 20130215
  45. CYTARABINE. [Suspect]
     Active Substance: CYTARABINE
     Dosage: R?BEAM?R REGIMEN
     Route: 065
     Dates: start: 20130705
  46. RITUXIMAB. [Suspect]
     Active Substance: RITUXIMAB
     Indication: B-CELL LYMPHOMA
     Dosage: R?CHOP REGIMEN
     Route: 065
     Dates: start: 20121130
  47. RITUXIMAB. [Suspect]
     Active Substance: RITUXIMAB
     Dosage: R?ESHAP REGIMEN
     Route: 065
     Dates: start: 20130309
  48. CYCLOPHOSPHAMIDE. [Suspect]
     Active Substance: CYCLOPHOSPHAMIDE
     Indication: B-CELL LYMPHOMA
     Dosage: R?CHOP REGIMEN
     Route: 065
     Dates: start: 20121130
  49. VINCRISTINE [Suspect]
     Active Substance: VINCRISTINE
     Indication: B-CELL LYMPHOMA
     Dosage: R?CHOP REGIMEN
     Route: 065
     Dates: start: 20121130
  50. PREDNISONE. [Suspect]
     Active Substance: PREDNISONE
     Indication: DIFFUSE LARGE B-CELL LYMPHOMA
     Dosage: R?CHOP REGIMEN
     Route: 065
     Dates: start: 20121225
  51. PREDNISONE. [Suspect]
     Active Substance: PREDNISONE
     Dosage: R?DA?EPOCH REGIMEN, DAY1?5
     Route: 065
     Dates: start: 20180627
  52. ETOPOSIDE. [Suspect]
     Active Substance: ETOPOSIDE
     Dosage: R?ESHAP REGIMEN
     Route: 065
     Dates: start: 20130309
  53. CYTARABINE. [Suspect]
     Active Substance: CYTARABINE
     Indication: B-CELL LYMPHOMA
     Dosage: R?ESHAP REGIMEN
     Route: 065
     Dates: start: 20130120
  54. CARMUSTINE. [Suspect]
     Active Substance: CARMUSTINE
     Indication: B-CELL LYMPHOMA
     Dosage: R?BEAM?R REGIMEN
     Route: 065
     Dates: start: 20130705

REACTIONS (3)
  - Myelosuppression [Unknown]
  - Respiratory failure [Fatal]
  - Pneumonia [Fatal]

NARRATIVE: CASE EVENT DATE: 2018
